FAERS Safety Report 6630413-9 (Version None)
Quarter: 2010Q1

REPORT INFORMATION
  Report Type: 
  Country: None (occurrence: None)
  Receive Date: 20100311
  Receipt Date: 20090618
  Transmission Date: 20100710
  Serious: Yes (Hospitalization)
  Sender: FDA-Public Use
  Company Number: US-BIOGENIDEC-2009BI018838

PATIENT
  Age: 40 Year
  Sex: Female

DRUGS (1)
  1. AVONEX [Suspect]
     Indication: MULTIPLE SCLEROSIS
     Route: 030
     Dates: start: 20070817, end: 20090410

REACTIONS (4)
  - MAMMOPLASTY [None]
  - MEMORY IMPAIRMENT [None]
  - MULTIPLE SCLEROSIS RELAPSE [None]
  - VISUAL ACUITY REDUCED [None]
